FAERS Safety Report 5078598-2 (Version None)
Quarter: 2006Q3

REPORT INFORMATION
  Report Type: 
  Country: None (occurrence: None)
  Receive Date: 20060808
  Receipt Date: 20060720
  Transmission Date: 20061208
  Serious: No
  Sender: FDA-Public Use
  Company Number: JP200512001415

PATIENT
  Age: 71 Year
  Sex: Female
  Weight: 47 kg

DRUGS (3)
  1. RALOXIFENE HCL [Suspect]
     Indication: OSTEOPOROSIS POSTMENOPAUSAL
     Dosage: 60 MG, DAILY (1/D), ORAL
     Route: 048
     Dates: start: 20050422
  2. CALDEMIN (CALCITRIOL) [Concomitant]
  3. LIPITOR [Concomitant]

REACTIONS (2)
  - NO ADVERSE DRUG EFFECT [None]
  - UTERINE PROLAPSE REPAIR [None]
